FAERS Safety Report 10064317 (Version 1)
Quarter: 2014Q2

REPORT INFORMATION
  Report Type: Spontaneous
  Country: BE (occurrence: None)
  Receive Date: 20140404
  Receipt Date: 20140404
  Transmission Date: 20141212
  Serious: Yes (Other)
  Sender: FDA-Public Use
  Company Number: B0980929A

PATIENT
  Age: 26 Year
  Sex: Female

DRUGS (4)
  1. PAROXETINE HYDROCHLORIDE (FORMULATION UNKNOWN) (PAROXETINE HYDROCHLORIDE) [Suspect]
     Indication: PRODUCT USED FOR UNKNOWN INDICATION
     Dates: start: 20140314
  2. INTERFERON BETA-LA [Concomitant]
  3. PANTOPRAZOLE [Concomitant]
  4. BUPROPION HYDROCHLORIDE [Concomitant]

REACTIONS (4)
  - Tremor [None]
  - Palpitations [None]
  - Diplopia [None]
  - Nausea [None]
